FAERS Safety Report 10221494 (Version 1)
Quarter: 2014Q2

REPORT INFORMATION
  Report Type: Spontaneous
  Country: JP (occurrence: JP)
  Receive Date: 20140606
  Receipt Date: 20140606
  Transmission Date: 20141212
  Serious: Yes (Other)
  Sender: FDA-Public Use
  Company Number: JP-MUNDIPHARMA DS AND PHARMACOVIGILANCE-GBR-2014-0018639

PATIENT
  Age: 45 Year
  Sex: 0

DRUGS (1)
  1. OXYCODONE HCL PR TABLET [Suspect]
     Indication: CANCER PAIN
     Dosage: 60 MG, DAILY
     Route: 048
     Dates: end: 201405

REACTIONS (1)
  - Delirium [Not Recovered/Not Resolved]
